FAERS Safety Report 5135415-X (Version None)
Quarter: 2006Q4

REPORT INFORMATION
  Report Type: 
  Country: None (occurrence: None)
  Receive Date: 20061026
  Receipt Date: 20061025
  Transmission Date: 20070319
  Serious: Yes (Hospitalization)
  Sender: FDA-Public Use
  Company Number: US-GLAXOSMITHKLINE-A0624833A

PATIENT
  Sex: Female

DRUGS (2)
  1. LAMICTAL [Suspect]
  2. LITHIUM CARBONATE [Concomitant]

REACTIONS (5)
  - HORMONE LEVEL ABNORMAL [None]
  - MENOPAUSAL SYMPTOMS [None]
  - MENSTRUATION IRREGULAR [None]
  - METRORRHAGIA [None]
  - SUICIDAL IDEATION [None]
